FAERS Safety Report 9858684 (Version 1)
Quarter: 2014Q1

REPORT INFORMATION
  Report Type: Spontaneous
  Country: US (occurrence: None)
  Receive Date: 20140130
  Receipt Date: 20140130
  Transmission Date: 20141002
  Serious: No
  Sender: FDA-Public Use
  Company Number: None

PATIENT
  Age: 69 Year
  Sex: Male
  Weight: 119.1 kg

DRUGS (1)
  1. HYDRALAZINE [Suspect]
     Dates: start: 20101123, end: 20130614

REACTIONS (6)
  - Pneumonia [None]
  - Hypersensitivity vasculitis [None]
  - Haematuria [None]
  - Proteinuria [None]
  - Rash [None]
  - Systemic lupus erythematosus rash [None]
